FAERS Safety Report 7012007-9 (Version None)
Quarter: 2010Q3

REPORT INFORMATION
  Report Type: 
  Country: None (occurrence: None)
  Receive Date: 20100924
  Receipt Date: 20100914
  Transmission Date: 20110219
  Serious: Yes (Disabling, Other)
  Sender: FDA-Public Use
  Company Number: PHHY2010US57073

PATIENT
  Sex: Male
  Weight: 90.249 kg

DRUGS (9)
  1. VALTURNA [Suspect]
     Indication: HYPERTENSION
     Dosage: 300/320
     Dates: start: 20100422
  2. VALTURNA [Suspect]
     Dosage: 40 MG ? QD
  3. DIOVAN [Suspect]
     Indication: HYPERTENSION
     Dosage: 300 MG
     Route: 048
  4. TEKTURNA [Suspect]
     Dosage: 150 MG
     Dates: start: 20090720
  5. LABETALOL HCL [Concomitant]
     Dosage: 300 BID
     Route: 048
     Dates: start: 20030301
  6. VYTORIN [Concomitant]
     Dosage: 10/80 QD
     Route: 048
     Dates: start: 20060201
  7. NORVASC [Concomitant]
     Dosage: 10 MG, QD
     Route: 048
     Dates: start: 20060501
  8. METFORMIN [Concomitant]
     Dosage: 500 BID
     Route: 048
     Dates: start: 20090401
  9. FUROSEMIDE [Concomitant]
     Dosage: 400 MG
     Route: 048
     Dates: start: 20100701

REACTIONS (4)
  - DIZZINESS [None]
  - HYPOTENSION [None]
  - PROTEINURIA [None]
  - SYNCOPE [None]
